FAERS Safety Report 7737760-8 (Version None)
Quarter: 2011Q3

REPORT INFORMATION
  Report Type: 
  Country: None (occurrence: None)
  Receive Date: 20110906
  Receipt Date: 20110823
  Transmission Date: 20111222
  Serious: Yes (Death)
  Sender: FDA-Public Use
  Company Number: UTC-009688

PATIENT
  Age: 83 Year
  Sex: Male
  Weight: 68.1 kg

DRUGS (5)
  1. TRACLEER [Concomitant]
  2. TYVASO [Suspect]
     Indication: PULMONARY ARTERIAL HYPERTENSION
     Dosage: 216 MCG (54 MCG, 4 IN 1 D)INHALATION
     Route: 055
     Dates: start: 20090924
  3. COUMADIN (WARFARIN SODIIUM) [Concomitant]
  4. REVATIO [Concomitant]
  5. DIURETICS (DIURETICS) [Concomitant]

REACTIONS (5)
  - OEDEMA PERIPHERAL [None]
  - GASTROINTESTINAL HAEMORRHAGE [None]
  - FLUID OVERLOAD [None]
  - DYSPNOEA [None]
  - ANAEMIA [None]
